FAERS Safety Report 4619401-1 (Version None)
Quarter: 2005Q2

REPORT INFORMATION
  Report Type: 
  Country: None (occurrence: None)
  Receive Date: 20050325
  Receipt Date: 20011001
  Transmission Date: 20051028
  Serious: Yes (Death, Hospitalization)
  Sender: FDA-Public Use
  Company Number: 64886-2002-050

PATIENT
  Age: 79 Year
  Sex: Female

DRUGS (8)
  1. METHOTREXATE [Suspect]
     Indication: RHEUMATOID ARTHRITIS
     Dosage: 7.5 MG WEEKLY PO
     Route: 048
     Dates: start: 20010604, end: 20010614
  2. ALDRENONATE SODIUM [Concomitant]
  3. PREDNISOLONE [Concomitant]
  4. SIMVASTATIN [Concomitant]
  5. LANSOPRAZOLE [Concomitant]
  6. CALCIUM GLUCONATE [Concomitant]
  7. DIPYRIDAMOLE [Concomitant]
  8. PARACETAMOL WITH CODEINE [Concomitant]

REACTIONS (7)
  - AGRANULOCYTOSIS [None]
  - ANAEMIA [None]
  - BACTERIA BLOOD IDENTIFIED [None]
  - LOBAR PNEUMONIA [None]
  - PNEUMONIA KLEBSIELLA [None]
  - SEPSIS [None]
  - THROMBOCYTOPENIA [None]
